FAERS Safety Report 5713700-8 (Version None)
Quarter: 2008Q2

REPORT INFORMATION
  Report Type: 
  Country: None (occurrence: None)
  Receive Date: 20080421
  Receipt Date: 20080407
  Transmission Date: 20081010
  Serious: Yes (Other)
  Sender: FDA-Public Use
  Company Number: 2008008616

PATIENT
  Age: 65 Year
  Sex: Female
  Weight: 108.8633 kg

DRUGS (1)
  1. LISTERINE WHITENING PRE-BRUSH RINSE (NO ACTIVE INGREDIENT) [Suspect]
     Indication: DENTAL CARE
     Dosage: 1 ML ONCE (1 ML), ORAL
     Route: 048
     Dates: start: 20080326, end: 20080402

REACTIONS (2)
  - GLOSSODYNIA [None]
  - TONGUE BLISTERING [None]
